FAERS Safety Report 7153651-8 (Version None)
Quarter: 2010Q4

REPORT INFORMATION
  Report Type: 
  Country: None (occurrence: None)
  Receive Date: 20101130
  Receipt Date: 20101115
  Transmission Date: 20110411
  Serious: Yes (Other)
  Sender: FDA-Public Use
  Company Number: 022038

PATIENT
  Sex: Male
  Weight: 2.1 kg

DRUGS (10)
  1. KEPPRA [Suspect]
     Dosage: (1500 MG TRANSPLACENTAL) ; (1 G BID TRANSPLACENTAL)
     Route: 064
     Dates: start: 20100620, end: 20100101
  2. KEPPRA [Suspect]
     Dosage: (1500 MG TRANSPLACENTAL) ; (1 G BID TRANSPLACENTAL)
     Route: 064
     Dates: start: 20100101, end: 20100830
  3. KEPPRA [Suspect]
     Dosage: (500 MG BY INTRAVENOUS IN 100 ML OF NACL 0.9% IN 15 MINUTES INTRAVENOUS (NOT OTHERWISE SPECIFIED))
     Route: 042
     Dates: start: 20100830, end: 20100830
  4. ZONEGRAN [Concomitant]
  5. TRILEPTAL [Concomitant]
  6. TARDYFERON [Concomitant]
  7. SPECIAFOLDINE [Concomitant]
  8. LOXEN [Concomitant]
  9. CORTANCYL [Concomitant]
  10. SYNTHOCINON [Concomitant]

REACTIONS (3)
  - FOETAL GROWTH RESTRICTION [None]
  - MATERNAL DRUGS AFFECTING FOETUS [None]
  - SMALL FOR DATES BABY [None]
